FAERS Safety Report 10046524 (Version 1)
Quarter: 2014Q1

REPORT INFORMATION
  Report Type: Spontaneous
  Country: US (occurrence: US)
  Receive Date: 20140331
  Receipt Date: 20140331
  Transmission Date: 20141002
  Serious: No
  Sender: FDA-Public Use
  Company Number: US-BIOGENIDEC-2014BI028065

PATIENT
  Age: 49 Year
  Sex: Female

DRUGS (17)
  1. TECFIDERA [Suspect]
     Indication: MULTIPLE SCLEROSIS
     Route: 048
     Dates: start: 201311
  2. SOMA [Concomitant]
  3. CODEINE SULFATE [Concomitant]
  4. EXFORGE [Concomitant]
  5. ENALAPRIL [Concomitant]
  6. MACROBID [Concomitant]
  7. GABAPENTIN [Concomitant]
  8. DIAZEPAM [Concomitant]
  9. BACLOFEN [Concomitant]
  10. CRESTOR [Concomitant]
  11. ENPRESSE [Concomitant]
  12. PROZAC [Concomitant]
  13. VITAMIN B COMPLEX [Concomitant]
  14. ZANAFLEX [Concomitant]
  15. CALCIUM PLUS VITAMIN D [Concomitant]
  16. PROBIOTIC [Concomitant]
  17. OXAPROZIN [Concomitant]

REACTIONS (2)
  - Lymphadenopathy [Unknown]
  - Flatulence [Unknown]
